FAERS Safety Report 7371376-0 (Version None)
Quarter: 2011Q1

REPORT INFORMATION
  Report Type: 
  Country: None (occurrence: None)
  Receive Date: 20110322
  Receipt Date: 20110322
  Transmission Date: 20110831
  Serious: Yes (Other)
  Sender: FDA-Public Use
  Company Number: None

PATIENT
  Age: 68 Year
  Sex: Male
  Weight: 131.5431 kg

DRUGS (1)
  1. CLOBETASOL PROPIONATE [Suspect]
     Indication: SKIN EXFOLIATION
     Dosage: LIBERAL DAILY TOP
     Route: 061
     Dates: start: 20090905, end: 20090905

REACTIONS (2)
  - ATRIAL FIBRILLATION [None]
  - ATRIAL FLUTTER [None]
